FAERS Safety Report 15649928 (Version 1)
Quarter: 2018Q4

REPORT INFORMATION
  Report Type: Spontaneous
  Country: TW (occurrence: TW)
  Receive Date: 20181123
  Receipt Date: 20181123
  Transmission Date: 20190205
  Serious: Yes (Death)
  Sender: FDA-Public Use
  Company Number: TW-009507513-1811TWN007630

PATIENT
  Age: 44 Year
  Sex: Female

DRUGS (5)
  1. TATUMCEF [Concomitant]
  2. TARGOCID [Concomitant]
     Active Substance: TEICOPLANIN
  3. SIMULECT [Concomitant]
     Active Substance: BASILIXIMAB
  4. RAPAMUNE [Concomitant]
     Active Substance: SIROLIMUS
  5. DAPTOMYCIN. [Suspect]
     Active Substance: DAPTOMYCIN
     Indication: ENTEROCOCCAL INFECTION
     Dosage: UNK
     Route: 065

REACTIONS (1)
  - Treatment failure [Fatal]
